FAERS Safety Report 5580828-5 (Version None)
Quarter: 2008Q1

REPORT INFORMATION
  Report Type: 
  Country: None (occurrence: None)
  Receive Date: 20080103
  Receipt Date: 20071210
  Transmission Date: 20080703
  Serious: No
  Sender: FDA-Public Use
  Company Number: US-BOEHRINGER INGELHEIM PHARMACEUTICALS, INC.-2007-BP-02648BP

PATIENT
  Sex: Female

DRUGS (4)
  1. SPIRIVA [Suspect]
     Indication: CHRONIC OBSTRUCTIVE PULMONARY DISEASE
     Route: 055
     Dates: start: 20060301
  2. DIGITEK [Concomitant]
     Indication: HEART RATE IRREGULAR
  3. LOPRESSOR [Concomitant]
     Indication: HEART RATE IRREGULAR
  4. ACTASE [Concomitant]
     Indication: HEART RATE IRREGULAR

REACTIONS (1)
  - DRUG INEFFECTIVE [None]
